FAERS Safety Report 5642958-9 (Version None)
Quarter: 2008Q1

REPORT INFORMATION
  Report Type: 
  Country: None (occurrence: None)
  Receive Date: 20080228
  Receipt Date: 20070723
  Transmission Date: 20080703
  Serious: Yes (Other)
  Sender: FDA-Public Use
  Company Number: US-ASTRAZENECA-2007UW25291

PATIENT
  Age: 34 Year
  Sex: Female
  Weight: 131.8 kg

DRUGS (6)
  1. SEROQUEL [Suspect]
     Indication: MAJOR DEPRESSION
     Dosage: 150-450 MG
     Route: 048
     Dates: start: 20031006, end: 20041001
  2. SEROQUEL [Suspect]
     Indication: ANXIETY DISORDER
     Dosage: 150-450 MG
     Route: 048
     Dates: start: 20031006, end: 20041001
  3. SEROQUEL [Suspect]
     Indication: NIGHTMARE
     Dosage: 150-450 MG
     Route: 048
     Dates: start: 20031006, end: 20041001
  4. SEROQUEL [Suspect]
     Dosage: 450 MG
     Route: 048
     Dates: start: 20041101, end: 20051201
  5. SEROQUEL [Suspect]
     Dosage: 450 MG
     Route: 048
     Dates: start: 20041101, end: 20051201
  6. SEROQUEL [Suspect]
     Dosage: 450 MG
     Route: 048
     Dates: start: 20041101, end: 20051201

REACTIONS (5)
  - ASTHMA [None]
  - DIABETES MELLITUS [None]
  - EYE DISORDER [None]
  - HYPERTENSION [None]
  - PULMONARY EMBOLISM [None]
